FAERS Safety Report 7746531-8 (Version None)
Quarter: 2011Q3

REPORT INFORMATION
  Report Type: 
  Country: None (occurrence: None)
  Receive Date: 20110913
  Receipt Date: 20110902
  Transmission Date: 20111222
  Serious: Yes (Other)
  Sender: FDA-Public Use
  Company Number: BR-BAYER-2011-043379

PATIENT
  Age: 63 Year
  Sex: Female
  Weight: 59 kg

DRUGS (8)
  1. SIMVASTATIN [Concomitant]
     Dosage: 20 MG, QD
     Route: 048
  2. CANDESARTAN CILEXETIL [Concomitant]
     Dosage: 8 MG, QD
     Route: 048
  3. ATENOLOL [Concomitant]
     Dosage: 25 MG, QD
     Route: 048
  4. LEVOTHYROXINE SODIUM [Concomitant]
     Dosage: 125 ?G, QD
     Route: 048
     Dates: end: 20110505
  5. NEXAVAR [Suspect]
     Indication: THYROID CANCER METASTATIC
     Dosage: 400 MG, BID
     Route: 048
     Dates: start: 20110314, end: 20110609
  6. OMEPRAZOLE [Concomitant]
     Dosage: 20 MG, QD
     Route: 048
     Dates: start: 20110415
  7. LEVOTHYROXINE SODIUM [Concomitant]
     Dosage: 137 ?G, QD
     Route: 048
     Dates: start: 20110506
  8. NEXAVAR [Suspect]
     Dosage: DAILY DOSE 800 MG
     Route: 048
     Dates: start: 20110314

REACTIONS (16)
  - FATIGUE [None]
  - HYPERKERATOSIS [None]
  - RASH ERYTHEMATOUS [None]
  - ALOPECIA [None]
  - RASH [None]
  - ASTHENIA [None]
  - INSOMNIA [None]
  - DIARRHOEA [None]
  - EPISTAXIS [None]
  - HYPERAESTHESIA [None]
  - MUCOSAL INFLAMMATION [None]
  - ABDOMINAL PAIN UPPER [None]
  - HYPERTENSIVE CRISIS [None]
  - WEIGHT DECREASED [None]
  - PRURITUS [None]
  - NAUSEA [None]
